FAERS Safety Report 9785343 (Version 1)
Quarter: 2013Q4

REPORT INFORMATION
  Report Type: Spontaneous
  Country: US (occurrence: US)
  Receive Date: 20131227
  Receipt Date: 20131227
  Transmission Date: 20140711
  Serious: No
  Sender: FDA-Public Use
  Company Number: US-MYLANLABS-2013S1013978

PATIENT
  Age: 79 Year
  Sex: Male
  Weight: 66.68 kg

DRUGS (2)
  1. LEVETIRACETAM TABLETS [Suspect]
     Indication: CONVULSION PROPHYLAXIS
     Dosage: PRESCRIBED TO TAKE 1 TABLET TWICE DAILY FOR 2 WEEKS, THEN ONE HALF TABLET TWICE DAILY FOR 1 WEEK
     Route: 048
     Dates: start: 20130620, end: 20130623
  2. RANEXA [Suspect]
     Indication: CARDIAC DISORDER
     Dates: start: 20130620

REACTIONS (4)
  - Myalgia [Not Recovered/Not Resolved]
  - Gait disturbance [Not Recovered/Not Resolved]
  - Dysuria [Not Recovered/Not Resolved]
  - Irritability [Recovered/Resolved]
